FAERS Safety Report 4342308-4 (Version None)
Quarter: 2004Q2

REPORT INFORMATION
  Report Type: 
  Country: None (occurrence: None)
  Receive Date: 20040415
  Receipt Date: 20040409
  Transmission Date: 20050107
  Serious: Yes (Death)
  Sender: FDA-Public Use
  Company Number: US-JNFOC-20040303735

PATIENT
  Age: 79 Year
  Sex: Female

DRUGS (1)
  1. RISPERDAL [Suspect]
     Dosage: ORAL
     Route: 048

REACTIONS (3)
  - FALL [None]
  - HYPONATRAEMIA [None]
  - SUBDURAL HAEMATOMA [None]
